FAERS Safety Report 15361748 (Version 1)
Quarter: 2018Q3

REPORT INFORMATION
  Report Type: Report from Study
  Country: FR (occurrence: FR)
  Receive Date: 20180907
  Receipt Date: 20180907
  Transmission Date: 20181010
  Serious: Yes (Hospitalization, Other)
  Sender: FDA-Public Use
  Company Number: FR-PFIZER INC-2018355581

PATIENT
  Age: 22 Year
  Sex: Male
  Weight: 85 kg

DRUGS (24)
  1. GEMCITABINE HYDROCHLORIDE. [Suspect]
     Active Substance: GEMCITABINE HYDROCHLORIDE
     Dosage: 1901 MG, UNK
     Route: 042
     Dates: start: 20160823
  2. ADCETRIS [Suspect]
     Active Substance: BRENTUXIMAB VEDOTIN
     Dosage: 140 MG, UNK
     Route: 042
     Dates: end: 20161025
  3. CYTARABINE. [Concomitant]
     Active Substance: CYTARABINE
     Indication: HODGKIN^S DISEASE
     Dosage: UNK
     Route: 050
     Dates: start: 20160604, end: 20160606
  4. NIVOLUMAB [Concomitant]
     Active Substance: NIVOLUMAB
     Dosage: 200 MG, UNK
     Route: 042
     Dates: start: 20160919
  5. NIVOLUMAB [Concomitant]
     Active Substance: NIVOLUMAB
     Dosage: UNK
     Dates: start: 20161102
  6. DOXORUBICIN HCL [Suspect]
     Active Substance: DOXORUBICIN HYDROCHLORIDE
     Dosage: 30 MG, UNK
     Route: 042
     Dates: start: 20160712, end: 20160823
  7. ADCETRIS [Suspect]
     Active Substance: BRENTUXIMAB VEDOTIN
     Dosage: UNK
     Route: 042
     Dates: start: 20160519
  8. GEMCITABINE HYDROCHLORIDE. [Suspect]
     Active Substance: GEMCITABINE HYDROCHLORIDE
     Indication: HODGKIN^S DISEASE
     Dosage: 2015 MG, UNK
     Route: 042
     Dates: start: 20160712, end: 20160823
  9. VINORELBINE [Suspect]
     Active Substance: VINORELBINE\VINORELBINE TARTRATE
     Dosage: 38 MG, UNK
     Route: 042
     Dates: start: 20160823
  10. ADCETRIS [Suspect]
     Active Substance: BRENTUXIMAB VEDOTIN
     Dosage: 135 MG, UNK
     Route: 042
     Dates: start: 20160831
  11. ADCETRIS [Suspect]
     Active Substance: BRENTUXIMAB VEDOTIN
     Dosage: 140 MG, UNK
     Route: 042
     Dates: start: 20160809
  12. DEXAMETHASONE. [Concomitant]
     Active Substance: DEXAMETHASONE
     Indication: HODGKIN^S DISEASE
     Dosage: UNK
     Route: 048
     Dates: start: 20160603
  13. ADCETRIS [Suspect]
     Active Substance: BRENTUXIMAB VEDOTIN
     Dosage: 145 MG, UNK
     Route: 042
     Dates: start: 20170307, end: 20170420
  14. VINORELBINE [Suspect]
     Active Substance: VINORELBINE\VINORELBINE TARTRATE
     Indication: HODGKIN^S DISEASE
     Dosage: 40 MG, UNK
     Route: 042
     Dates: start: 20160712, end: 20160823
  15. BENDAMUSTINE [Concomitant]
     Active Substance: BENDAMUSTINE
     Dosage: UNK
     Dates: start: 20161102, end: 20170515
  16. GEMCITABINE HYDROCHLORIDE. [Suspect]
     Active Substance: GEMCITABINE HYDROCHLORIDE
     Dosage: UNK
     Route: 042
     Dates: start: 20160625
  17. ADCETRIS [Suspect]
     Active Substance: BRENTUXIMAB VEDOTIN
     Dosage: 135 MG, UNK
     Route: 042
     Dates: start: 20161005
  18. VINORELBINE [Suspect]
     Active Substance: VINORELBINE\VINORELBINE TARTRATE
     Dosage: UNK
     Route: 042
     Dates: start: 20160625
  19. OXALIPLATIN. [Concomitant]
     Active Substance: OXALIPLATIN
     Indication: HODGKIN^S DISEASE
     Dosage: UNK
     Route: 050
     Dates: start: 20160603, end: 20160603
  20. DOXORUBICIN HCL [Suspect]
     Active Substance: DOXORUBICIN HYDROCHLORIDE
     Indication: HODGKIN^S DISEASE
     Dosage: 28 MG, UNK
     Route: 042
     Dates: start: 20160823
  21. ADCETRIS [Suspect]
     Active Substance: BRENTUXIMAB VEDOTIN
     Indication: HODGKIN^S DISEASE
     Dosage: 150 MG, UNK
     Route: 042
     Dates: start: 20160712
  22. ADCETRIS [Suspect]
     Active Substance: BRENTUXIMAB VEDOTIN
     Dosage: UNK
     Route: 042
     Dates: start: 20160914
  23. NIVOLUMAB [Concomitant]
     Active Substance: NIVOLUMAB
     Dosage: UNK
     Route: 065
     Dates: start: 20160914
  24. IFOSFAMIDE. [Concomitant]
     Active Substance: IFOSFAMIDE
     Dosage: UNK
     Route: 065
     Dates: start: 20160625

REACTIONS (20)
  - Oral fungal infection [Unknown]
  - Anaemia [Recovered/Resolved]
  - Weight decreased [Unknown]
  - Hypoalbuminaemia [Recovered/Resolved]
  - Neuralgia [Recovered/Resolved]
  - Dyspnoea [Unknown]
  - Constipation [Unknown]
  - Thrombocytopenia [Unknown]
  - Hypercalcaemia [Recovered/Resolved]
  - Musculoskeletal chest pain [Recovered/Resolved]
  - Back pain [Unknown]
  - Decreased appetite [Recovered/Resolved]
  - Weight increased [Unknown]
  - Pain [Recovered/Resolved]
  - Vomiting [Recovered/Resolved]
  - Pyrexia [Recovered/Resolved]
  - Neuropathy peripheral [Unknown]
  - Nausea [Recovered/Resolved]
  - Full blood count abnormal [Unknown]
  - Sepsis [Recovered/Resolved]

NARRATIVE: CASE EVENT DATE: 20160602
